FAERS Safety Report 19711901 (Version 2)
Quarter: 2021Q3

REPORT INFORMATION
  Report Type: Report from Study
  Country: CA (occurrence: CA)
  Receive Date: 20210816
  Receipt Date: 20210907
  Transmission Date: 20211014
  Serious: Yes (Hospitalization)
  Sender: FDA-Public Use
  Company Number: CA-OTSUKA-2021_011725

PATIENT
  Age: 78 Year
  Sex: Male

DRUGS (1)
  1. CEDAZURIDINE AND DECITABINE [Suspect]
     Active Substance: CEDAZURIDINE\DECITABINE
     Indication: MYELODYSPLASTIC SYNDROME
     Dosage: (35 MG DECITABINE AND 100 MG CEDAZURIDINE)
     Route: 065
     Dates: start: 20210326

REACTIONS (4)
  - Transfusion [Unknown]
  - Drug ineffective [Unknown]
  - Blood iron increased [Unknown]
  - White blood cell count decreased [Unknown]

NARRATIVE: CASE EVENT DATE: 20210806
